APPROVED DRUG PRODUCT: MORPHINE SULFATE
Active Ingredient: MORPHINE SULFATE
Strength: 30MG
Dosage Form/Route: TABLET;ORAL
Application: N022207 | Product #002 | TE Code: AB
Applicant: HIKMA PHARMACEUTICALS USA INC
Approved: Mar 17, 2008 | RLD: Yes | RS: Yes | Type: RX